FAERS Safety Report 20688531 (Version 1)
Quarter: 2022Q2

REPORT INFORMATION
  Report Type: Spontaneous
  Country: PL (occurrence: PL)
  Receive Date: 20220408
  Receipt Date: 20220408
  Transmission Date: 20220720
  Serious: Yes (Hospitalization, Other)
  Sender: FDA-Public Use
  Company Number: PL-EMA-2022317-AUTODUP-1647550853766

PATIENT
  Age: 59 Year
  Sex: Male

DRUGS (16)
  1. ATORVASTATIN [Suspect]
     Active Substance: ATORVASTATIN
     Indication: Product used for unknown indication
     Dosage: 20 MG 1 TABLET
     Route: 065
  2. ATORVASTATIN [Suspect]
     Active Substance: ATORVASTATIN
     Dosage: 40 MG ( 1 TAB IN THE EVENING
     Route: 065
  3. RAMIPRIL [Suspect]
     Active Substance: RAMIPRIL
     Indication: Product used for unknown indication
     Dosage: 50 MG (2X 1 TABLET)
     Route: 065
  4. ASPIRIN [Suspect]
     Active Substance: ASPIRIN
     Indication: Product used for unknown indication
     Dosage: 100 MG (1 TABLET)
     Route: 065
  5. ENTRESTO [Suspect]
     Active Substance: SACUBITRIL\VALSARTAN
     Indication: Product used for unknown indication
     Dosage: 1 DOSAGE FORM (1 IN THE MORNING AND IN THE EVEING)
     Route: 065
  6. ENTRESTO [Suspect]
     Active Substance: SACUBITRIL\VALSARTAN
     Dosage: 49/51 DOSE TO 2 X 1 TABL. ()
     Route: 065
  7. ENTRESTO [Suspect]
     Active Substance: SACUBITRIL\VALSARTAN
     Dosage: 97/103, 1 TAB IN THE MORNING AND EVENING ()
     Route: 065
  8. EPLERENONE [Suspect]
     Active Substance: EPLERENONE
     Indication: Product used for unknown indication
     Dosage: 50 MILLIGRAM (1/2 TABLET)
     Route: 065
  9. POTASSIUM [Suspect]
     Active Substance: POTASSIUM
     Indication: Product used for unknown indication
     Dosage: 1 DOSAGE FORM (CAPSULE)
     Route: 065
  10. METOPROLOL [Suspect]
     Active Substance: METOPROLOL
     Indication: Product used for unknown indication
     Dosage: UNK
     Route: 065
  11. DAPAGLIFLOZIN [Concomitant]
     Active Substance: DAPAGLIFLOZIN
     Indication: Product used for unknown indication
     Dosage: 10 MG (1 TAB IN THE MORNING
     Route: 065
  12. RIVAROXABAN [Concomitant]
     Active Substance: RIVAROXABAN
     Indication: Product used for unknown indication
     Dosage: 20 MG (1 TAB IN THE MORNING)
     Route: 065
  13. ROSUVASTATIN [Concomitant]
     Active Substance: ROSUVASTATIN
     Indication: Product used for unknown indication
     Dosage: 15 MG (1 TAB AFTER EVENING MEAL)
     Route: 065
  14. DIGITALIS [Concomitant]
     Active Substance: DIGITALIS
     Indication: Product used for unknown indication
     Dosage: 0.1 MILLIGRAM, (1 TAB IN THE MORNING)
     Route: 065
  15. TORSEMIDE [Concomitant]
     Active Substance: TORSEMIDE
     Indication: Product used for unknown indication
     Dosage: 5 MG (1 TAB IN THE MORNING)
  16. BISOPROLOL [Concomitant]
     Active Substance: BISOPROLOL
     Indication: Product used for unknown indication
     Dosage: 10 MG (1 TABLET IN THE MORNING)
     Route: 065

REACTIONS (10)
  - Cardiac failure [Recovering/Resolving]
  - Micturition frequency decreased [Unknown]
  - Arrhythmia [Unknown]
  - Arteriosclerosis coronary artery [Unknown]
  - Coronary artery stenosis [Unknown]
  - Wrong technique in product usage process [Unknown]
  - Syncope [Unknown]
  - Palpitations [Unknown]
  - Oedema peripheral [Recovering/Resolving]
  - Dyspnoea exertional [Unknown]

NARRATIVE: CASE EVENT DATE: 20220101
